FAERS Safety Report 5017714-5 (Version None)
Quarter: 2006Q2

REPORT INFORMATION
  Report Type: 
  Country: None (occurrence: None)
  Receive Date: 20060605
  Receipt Date: 20060527
  Transmission Date: 20061013
  Serious: Yes (Hospitalization)
  Sender: FDA-Public Use
  Company Number: PHBS2006JP07822

PATIENT
  Age: 70 Year
  Sex: Female

DRUGS (18)
  1. PROGRAF [Suspect]
     Indication: RHEUMATOID ARTHRITIS
     Dosage: 1 MG/DAY
     Dates: start: 20060322, end: 20060404
  2. PROGRAF [Suspect]
     Dosage: 2 MG/DAY
     Dates: start: 20060405, end: 20060503
  3. DIOVAN [Suspect]
     Indication: HYPERTENSION
     Dosage: 1 DF/DAY
     Route: 048
  4. FAMOTIDINE [Suspect]
     Dosage: 40 MG/DAY
     Route: 048
     Dates: end: 20060427
  5. DOXAZOSIN MESYLATE [Concomitant]
     Indication: HYPERTENSION
     Dosage: 4 MG, UNK
  6. AMLODIN [Concomitant]
     Indication: HYPERTENSION
     Dosage: 1 DF, UNK
     Dates: end: 20060427
  7. ASPIRIN [Concomitant]
     Indication: DIABETES MELLITUS
     Dosage: 1 DF, UNK
  8. ONON [Concomitant]
     Dosage: 4 DF, UNK
  9. HOKUNALIN [Concomitant]
     Dosage: 1 DF, UNK
  10. BRUFEN [Concomitant]
     Indication: RHEUMATOID ARTHRITIS
     Dosage: 3 DF, UNK
  11. NIKORANMART [Concomitant]
     Indication: HYPERTENSION
     Dosage: 3 DF, UNK
  12. MEDET [Concomitant]
     Indication: DIABETES MELLITUS
     Dates: start: 20060420, end: 20060426
  13. HUMALOG [Concomitant]
     Indication: DIABETES MELLITUS
     Dates: start: 20060425, end: 20060503
  14. CONIEL [Concomitant]
     Indication: HYPERTENSION
     Dosage: 4 MG, UNK
     Dates: start: 20060428
  15. TAKEPRON [Concomitant]
     Dosage: 30 MG, UNK
     Dates: start: 20060428
  16. MEDIPEACE [Concomitant]
     Dosage: 1.5 MG, UNK
  17. STARSIS [Suspect]
     Indication: DIABETES MELLITUS
     Dosage: 60 MG/DAY
     Route: 048
     Dates: end: 20060425
  18. STARSIS [Suspect]
     Dosage: 60 MG/DAY
     Route: 048
     Dates: start: 20060504

REACTIONS (4)
  - BLOOD CREATININE INCREASED [None]
  - BLOOD GLUCOSE INCREASED [None]
  - BLOOD POTASSIUM INCREASED [None]
  - BLOOD UREA INCREASED [None]
